FAERS Safety Report 16943787 (Version 2)
Quarter: 2019Q4

REPORT INFORMATION
  Report Type: Report from Study
  Country: BR (occurrence: BR)
  Receive Date: 20191022
  Receipt Date: 20191028
  Transmission Date: 20200122
  Serious: Yes (Hospitalization)
  Sender: FDA-Public Use
  Company Number: BR-BRISTOL-MYERS SQUIBB COMPANY-BMS-2019-100389

PATIENT
  Age: 76 Year
  Sex: Male

DRUGS (2)
  1. ALENIA [BUDESONIDE;FORMOTEROL FUMARATE] [Concomitant]
     Active Substance: BUDESONIDE\FORMOTEROL FUMARATE
     Indication: EMPHYSEMA
     Dosage: 1 DOSAGE FORM, BID
     Route: 065
     Dates: start: 201902
  2. NIVOLUMAB [Suspect]
     Active Substance: NIVOLUMAB
     Indication: PROSTATE CANCER
     Dosage: 240 MILLIGRAM
     Route: 042
     Dates: start: 20190903

REACTIONS (2)
  - Diplopia [Recovering/Resolving]
  - Strabismus [Recovering/Resolving]

NARRATIVE: CASE EVENT DATE: 20191012
